FAERS Safety Report 6822982-0 (Version None)
Quarter: 2010Q3

REPORT INFORMATION
  Report Type: 
  Country: None (occurrence: None)
  Receive Date: 20100702
  Receipt Date: 20100622
  Transmission Date: 20110219
  Serious: Yes (Hospitalization)
  Sender: FDA-Public Use
  Company Number: 7008975

PATIENT
  Age: 37 Year
  Sex: Female

DRUGS (2)
  1. REBIF [Suspect]
     Indication: PRODUCT USED FOR UNKNOWN INDICATION
     Dosage: 8.8 MCG, 3 IN 7 D, SUBCUTANEOUS, 22MCG, 3 IN 7 D, SUBCUTANEOUS
     Route: 058
     Dates: start: 20100308, end: 20100101
  2. REBIF [Suspect]
     Indication: PRODUCT USED FOR UNKNOWN INDICATION
     Dosage: 8.8 MCG, 3 IN 7 D, SUBCUTANEOUS, 22MCG, 3 IN 7 D, SUBCUTANEOUS
     Route: 058
     Dates: start: 20100101

REACTIONS (3)
  - DRUG HYPERSENSITIVITY [None]
  - FEELING ABNORMAL [None]
  - INJECTION SITE PAIN [None]
